FAERS Safety Report 4617961-8 (Version None)
Quarter: 2005Q1

REPORT INFORMATION
  Report Type: 
  Country: None (occurrence: None)
  Receive Date: 20050322
  Receipt Date: 20050310
  Transmission Date: 20050727
  Serious: Yes (Life-Threatening, Hospitalization)
  Sender: FDA-Public Use
  Company Number: 2005-00897

PATIENT
  Age: 62 Year
  Sex: Male

DRUGS (1)
  1. FIORINAL W/CODEINE [Suspect]
     Indication: COUGH
     Dosage: 25 MG, TID, ORAL
     Route: 048

REACTIONS (1)
  - DRUG TOXICITY [None]
